FAERS Safety Report 25074090 (Version 1)
Quarter: 2025Q1

REPORT INFORMATION
  Report Type: Spontaneous
  Country: US (occurrence: None)
  Receive Date: 20250312
  Receipt Date: 20250312
  Transmission Date: 20250409
  Serious: Yes (Hospitalization)
  Sender: FDA-CTU
  Company Number: None

PATIENT
  Sex: Female
  Weight: 104.33 kg

DRUGS (5)
  1. WINREVAIR [Suspect]
     Active Substance: SOTATERCEPT-CSRK
     Indication: Pulmonary arterial hypertension
     Dosage: FREQUENCY : EVERY THREE WEEKS;?
     Route: 058
     Dates: start: 202411
  2. INSULIN NOS [Concomitant]
     Active Substance: INSULIN NOS
  3. LASIX [Concomitant]
     Active Substance: FUROSEMIDE
  4. ORENITRAM [Concomitant]
     Active Substance: TREPROSTINIL
  5. OPSUMIT [Concomitant]
     Active Substance: MACITENTAN

REACTIONS (2)
  - Renal disorder [None]
  - Hypertension [None]
